FAERS Safety Report 5029249-4 (Version None)
Quarter: 2006Q2

REPORT INFORMATION
  Report Type: 
  Country: None (occurrence: None)
  Receive Date: 20060613
  Receipt Date: 20060530
  Transmission Date: 20061013
  Serious: Yes (Other)
  Sender: FDA-Public Use
  Company Number: GXKR2006US03190

PATIENT
  Age: 75 Year
  Sex: Female

DRUGS (11)
  1. AMITRIPTYLINE HCL [Suspect]
     Indication: SCHIZOAFFECTIVE DISORDER
     Dosage: 100 MG, QD, ORAL
     Route: 048
  2. THIOTHIXENE (NGX) (THIOTHIXENE) [Suspect]
     Indication: SCHIZOAFFECTIVE DISORDER
     Dosage: 5 MG, BID, ORAL
     Route: 048
  3. TRAZODONE (NGX) (TRAZODONE) [Suspect]
     Indication: SCHIZOAFFECTIVE DISORDER
     Dosage: 150 MG, QD, ORAL
     Route: 048
  4. LITHIUM (LITHIUM) [Suspect]
     Indication: SCHIZOAFFECTIVE DISORDER
     Dosage: 300 MG, QD, ORAL
     Route: 048
  5. BENZTROPINE MESYLATE [Suspect]
     Indication: SCHIZOAFFECTIVE DISORDER
     Dosage: 1 MG, BID, ORAL
     Route: 048
  6. DIVALPROEX SODIUM [Suspect]
     Indication: SCHIZOAFFECTIVE DISORDER
     Dosage: 250 MG, TID, ORAL
     Route: 048
  7. FLUTICASONE W/SALMETEROL (FLUTICASONE, SALMETEROL) [Concomitant]
  8. MONTELUKAST (MONTELUKAST) [Concomitant]
  9. HYDROCHLOROTHIAZIDE [Concomitant]
  10. LISINOPRIL [Concomitant]
  11. LEVOTHYROXINE SODIUM [Concomitant]

REACTIONS (7)
  - ANTICHOLINERGIC SYNDROME [None]
  - DRUG INTERACTION [None]
  - DRUG LEVEL BELOW THERAPEUTIC [None]
  - ORTHOSTATIC HYPOTENSION [None]
  - REFUSAL OF TREATMENT BY PATIENT [None]
  - TARDIVE DYSKINESIA [None]
  - TREATMENT NONCOMPLIANCE [None]
